FAERS Safety Report 5359633-0 (Version None)
Quarter: 2007Q2

REPORT INFORMATION
  Report Type: 
  Country: None (occurrence: None)
  Receive Date: 20070615
  Receipt Date: 20070604
  Transmission Date: 20071010
  Serious: Yes (Other)
  Sender: FDA-Public Use
  Company Number: AR-SHR-AR-2006-032096

PATIENT
  Age: 45 Year
  Sex: Female
  Weight: 76 kg

DRUGS (9)
  1. BETASERON [Suspect]
     Indication: RELAPSING-REMITTING MULTIPLE SCLEROSIS
     Dosage: 1 ML, EVERY 2D
     Route: 058
     Dates: start: 20040714, end: 20061004
  2. BETASERON [Suspect]
     Dosage: 0.25 ML TITRATED TO 1 ML
     Route: 058
     Dates: start: 20070117
  3. CLONAZEPAM [Concomitant]
     Indication: ANXIETY
     Dosage: .5 MG, 1X/DAY
     Route: 048
     Dates: start: 20050214
  4. IBUPROFEN [Concomitant]
     Indication: PROPHYLAXIS
     Dosage: 400 MG, EVERY 2D
     Route: 048
     Dates: start: 20040714, end: 20041010
  5. METHYLPREDNISOLONE 16MG TAB [Concomitant]
     Indication: PARAESTHESIA
     Dosage: 1 G, 1 DOSE
     Route: 042
     Dates: start: 20050901, end: 20050901
  6. METHYLPREDNISOLONE 16MG TAB [Concomitant]
     Indication: MULTIPLE SCLEROSIS RELAPSE
     Dosage: 1 G, UNK
     Route: 042
     Dates: start: 20060822, end: 20060822
  7. METHYLPREDNISOLONE 16MG TAB [Concomitant]
     Dosage: 1 G, DAILY
     Route: 042
     Dates: start: 20060817, end: 20060817
  8. METHYLPREDNISOLONE 16MG TAB [Concomitant]
     Dosage: 1 G, DAILY
     Route: 042
     Dates: start: 20060819, end: 20060819
  9. CLONAZEPAM [Concomitant]
     Dosage: .25 MG, AS REQ'D
     Route: 048
     Dates: start: 20061004

REACTIONS (3)
  - ALANINE AMINOTRANSFERASE INCREASED [None]
  - ASPARTATE AMINOTRANSFERASE INCREASED [None]
  - BILIRUBIN CONJUGATED INCREASED [None]
